FAERS Safety Report 5399754-X (Version None)
Quarter: 2007Q3

REPORT INFORMATION
  Report Type: 
  Country: None (occurrence: None)
  Receive Date: 20070727
  Receipt Date: 20070717
  Transmission Date: 20080115
  Serious: Yes (Other)
  Sender: FDA-Public Use
  Company Number: US-PFIZER INC-2007060453

PATIENT
  Sex: Male
  Weight: 123 kg

DRUGS (2)
  1. CHANTIX [Suspect]
     Indication: EX-SMOKER
  2. ZOLOFT [Concomitant]

REACTIONS (3)
  - OEDEMA MOUTH [None]
  - PRURITUS [None]
  - SWELLING FACE [None]
